FAERS Safety Report 5069993-6 (Version None)
Quarter: 2006Q3

REPORT INFORMATION
  Report Type: 
  Country: None (occurrence: None)
  Receive Date: 20060731
  Receipt Date: 20060718
  Transmission Date: 20061208
  Serious: Yes (Hospitalization)
  Sender: FDA-Public Use
  Company Number: CHNY2006FR02029

PATIENT
  Age: 43 Year
  Sex: Male

DRUGS (5)
  1. INIPOMP(PANTOPRAZOLE) [Suspect]
     Indication: PROPHYLAXIS AGAINST GASTROINTESTINAL ULCER
     Dosage: 40 MG/DAY, ORAL
     Route: 048
     Dates: start: 20060609, end: 20060610
  2. NICOTINE [Suspect]
     Indication: SMOKING CESSATION THERAPY
     Dosage: 21 MG, ONCE/SINGLE, TRANSDERMAL
     Route: 062
     Dates: start: 20060610, end: 20060610
  3. PERFALGAN (PARACETAMOL) INJECTION [Suspect]
     Indication: BACK PAIN
     Dosage: 4 DF, QD, INTRAVENOUS
     Route: 042
     Dates: start: 20060609, end: 20060610
  4. KETOPROFEN [Suspect]
     Indication: BACK PAIN
     Dosage: 200 MG/DAY, INTRAVENOUS
     Route: 042
     Dates: start: 20060608, end: 20060610
  5. MIOREL (THIOCOLCHICOSIDE) [Suspect]
     Indication: BACK PAIN
     Dosage: 16 MG/DAY, ORAL
     Route: 048
     Dates: start: 20060608

REACTIONS (3)
  - ANAPHYLACTIC REACTION [None]
  - FACE OEDEMA [None]
  - URTICARIA [None]
